FAERS Safety Report 25786944 (Version 1)
Quarter: 2025Q3

REPORT INFORMATION
  Report Type: Spontaneous
  Country: US (occurrence: US)
  Receive Date: 20250910
  Receipt Date: 20250910
  Transmission Date: 20251020
  Serious: No
  Sender: ANI
  Company Number: US-ANIPHARMA-2025-US-015172

PATIENT
  Age: 22 Year
  Sex: Female

DRUGS (12)
  1. CORTICOTROPIN [Suspect]
     Active Substance: CORTICOTROPIN
     Indication: Systemic lupus erythematosus
     Route: 058
     Dates: start: 202502
  2. HYDROCHLOROTHIAZIDE\LOSARTAN POTASSIUM [Concomitant]
     Active Substance: HYDROCHLOROTHIAZIDE\LOSARTAN POTASSIUM
  3. HYDROXYZINE PAMOATE [Concomitant]
     Active Substance: HYDROXYZINE PAMOATE
  4. ASPIRIN [Concomitant]
     Active Substance: ASPIRIN
  5. AMITRIPTYLINE HYDROCHLORIDE [Concomitant]
     Active Substance: AMITRIPTYLINE HYDROCHLORIDE
  6. GABAPENTIN [Concomitant]
     Active Substance: GABAPENTIN
  7. JARDIANCE [Concomitant]
     Active Substance: EMPAGLIFLOZIN
  8. WARFARIN SODIUM [Concomitant]
     Active Substance: WARFARIN SODIUM
  9. PANTOPRAZOLE SODIUM [Concomitant]
     Active Substance: PANTOPRAZOLE SODIUM
  10. TOPIRAMATE [Concomitant]
     Active Substance: TOPIRAMATE
  11. NURTEC ODT [Concomitant]
     Active Substance: RIMEGEPANT SULFATE
  12. TARGRETIN [Concomitant]
     Active Substance: BEXAROTENE

REACTIONS (1)
  - Blood pressure increased [Not Recovered/Not Resolved]

NARRATIVE: CASE EVENT DATE: 20250301
